FAERS Safety Report 5513791-3 (Version None)
Quarter: 2007Q4

REPORT INFORMATION
  Report Type: 
  Country: None (occurrence: None)
  Receive Date: 20071113
  Receipt Date: 20071105
  Transmission Date: 20080405
  Serious: Yes (Other)
  Sender: FDA-Public Use
  Company Number: PHRM2007FR02439

PATIENT
  Age: 69 Year
  Sex: Male
  Weight: 82 kg

DRUGS (5)
  1. VALSARTAN [Suspect]
     Indication: HYPERTENSION
     Dosage: 160 MG, QD
     Route: 048
     Dates: start: 20070201, end: 20071015
  2. NEXIUM [Suspect]
     Dosage: 40 MG, BID
     Dates: start: 20070720, end: 20070815
  3. NEXIUM [Suspect]
     Dosage: 40 MG, BID
     Dates: end: 20070919
  4. CORDARONE [Concomitant]
     Dosage: 5 DF/WEEK
  5. KARDEGIC [Concomitant]
     Dosage: 160 MG, QD

REACTIONS (7)
  - ALBUMINURIA [None]
  - ARRHYTHMIA [None]
  - DIZZINESS [None]
  - GAMMA-GLUTAMYLTRANSFERASE INCREASED [None]
  - HYPOTENSION [None]
  - LIVER DISORDER [None]
  - MALAISE [None]
